FAERS Safety Report 5454969-7 (Version None)
Quarter: 2007Q3

REPORT INFORMATION
  Report Type: 
  Country: None (occurrence: None)
  Receive Date: 20070917
  Receipt Date: 20070905
  Transmission Date: 20080115
  Serious: Yes (Other)
  Sender: FDA-Public Use
  Company Number: PFIZER INC-2007074919

PATIENT
  Sex: Female
  Weight: 14.1 kg

DRUGS (21)
  1. ANIDULAFUNGIN [Suspect]
     Indication: ANTIFUNGAL PROPHYLAXIS
     Dosage: DAILY DOSE:50MG
     Route: 042
     Dates: start: 20070525, end: 20070529
  2. PREDNISONE [Concomitant]
     Dates: start: 20070510
  3. LANSOPRAZOLE [Concomitant]
  4. PREDNISOLONE [Concomitant]
  5. AMLODIPINE [Concomitant]
  6. PENICILLIN VK [Concomitant]
     Dates: start: 20070515, end: 20070529
  7. ONDANSETRON [Concomitant]
  8. ACETAMINOPHEN [Concomitant]
  9. CIPROFLOXACIN [Concomitant]
     Dates: start: 20070525, end: 20070529
  10. ANTITHYMOCYTE IMMUNOGLOBULIN [Concomitant]
  11. ANTITHYMOCYTE IMMUNOGLOBULIN [Concomitant]
  12. FLUDARABINE [Concomitant]
  13. FLUDARABINE [Concomitant]
  14. MELPHALAN [Concomitant]
  15. ACYCLOVIR [Concomitant]
  16. VANCOMYCIN [Concomitant]
  17. GENTAMICIN [Concomitant]
  18. TIMENTIN [Concomitant]
  19. TACROLIMUS [Concomitant]
  20. MORPHINE [Concomitant]
  21. LORAZEPAM [Concomitant]

REACTIONS (2)
  - MEDICATION ERROR [None]
  - PANCREATITIS [None]
